FAERS Safety Report 15013326 (Version 1)
Quarter: 2018Q2

REPORT INFORMATION
  Report Type: Spontaneous
  Country: US (occurrence: US)
  Receive Date: 20180614
  Receipt Date: 20180614
  Transmission Date: 20180711
  Serious: Yes (Death, Other)
  Sender: FDA-Public Use
  Company Number: US-GILEAD-2018-0343063

PATIENT
  Age: 36 Year
  Sex: Male

DRUGS (4)
  1. ATRIPLA [Suspect]
     Active Substance: EFAVIRENZ\EMTRICITABINE\TENOFOVIR DISOPROXIL FUMARATE
     Indication: HIV INFECTION
     Dosage: UNK
     Route: 065
  2. NITAZOXANIDE [Concomitant]
     Active Substance: NITAZOXANIDE
  3. IVERMECTIN. [Concomitant]
     Active Substance: IVERMECTIN
  4. GANCICLOVIR. [Concomitant]
     Active Substance: GANCICLOVIR

REACTIONS (1)
  - Immune reconstitution inflammatory syndrome [Fatal]

NARRATIVE: CASE EVENT DATE: 2010
